FAERS Safety Report 9911951 (Version 1)
Quarter: 2014Q1

REPORT INFORMATION
  Report Type: Spontaneous
  Country: US (occurrence: US)
  Receive Date: 20140219
  Receipt Date: 20140219
  Transmission Date: 20141002
  Serious: No
  Sender: FDA-Public Use
  Company Number: US-MYLANLABS-2013S1023981

PATIENT
  Age: 19 Year
  Sex: Female
  Weight: 65.77 kg

DRUGS (1)
  1. EPIPEN 2-PAK [Suspect]
     Dates: start: 20131023, end: 20131023

REACTIONS (3)
  - Accidental exposure to product [Recovered/Resolved]
  - Dizziness [Not Recovered/Not Resolved]
  - Injection site haemorrhage [Recovered/Resolved]
